FAERS Safety Report 21809409 (Version 1)
Quarter: 2023Q1

REPORT INFORMATION
  Report Type: Spontaneous
  Country: US (occurrence: US)
  Receive Date: 20230103
  Receipt Date: 20230103
  Transmission Date: 20230418
  Serious: No
  Sender: FDA-Public Use
  Company Number: US-BRISTOL-MYERS SQUIBB COMPANY-2023-000553

PATIENT
  Age: 60 Year
  Sex: Female

DRUGS (1)
  1. POMALYST [Suspect]
     Active Substance: POMALIDOMIDE
     Indication: Plasma cell myeloma
     Dosage: FREQ: EVERY OTHER DAY
     Route: 048
     Dates: start: 202208

REACTIONS (2)
  - White blood cell count decreased [Unknown]
  - Mental status changes [Unknown]

NARRATIVE: CASE EVENT DATE: 20230102
